FAERS Safety Report 19396951 (Version 1)
Quarter: 2021Q2

REPORT INFORMATION
  Report Type: Other
  Country: US (occurrence: US)
  Receive Date: 20210610
  Receipt Date: 20210610
  Transmission Date: 20210717
  Serious: Yes (Other)
  Sender: FDA-Public Use
  Company Number: US-INTERCEPT-PM2021001869

PATIENT
  Sex: Female

DRUGS (2)
  1. OCALIVA [Suspect]
     Active Substance: OBETICHOLIC ACID
     Indication: PRIMARY BILIARY CHOLANGITIS
     Dosage: 5 MG, QD
     Route: 048
     Dates: start: 20171121
  2. OCALIVA [Suspect]
     Active Substance: OBETICHOLIC ACID
     Dosage: 1 MILLIGRAM, QD
     Route: 048
     Dates: start: 202104

REACTIONS (1)
  - Disease progression [Unknown]
